FAERS Safety Report 8170109-8 (Version None)
Quarter: 2012Q1

REPORT INFORMATION
  Report Type: 
  Country: None (occurrence: None)
  Receive Date: 20120228
  Receipt Date: 20120217
  Transmission Date: 20120608
  Serious: No
  Sender: FDA-Public Use
  Company Number: US-B.I. PHARMACEUTICALS,INC./RIDGEFIELD-2012-BP-03208BP

PATIENT
  Sex: Male

DRUGS (6)
  1. NORVASC [Concomitant]
     Indication: HYPERTENSION
     Route: 048
  2. NIACIN [Concomitant]
     Indication: SUPPLEMENTATION THERAPY
     Route: 048
  3. PRADAXA [Suspect]
     Indication: ATRIAL FIBRILLATION
     Dosage: 300 MG
     Route: 048
     Dates: start: 20120101
  4. CARVEDILOL [Concomitant]
     Indication: HYPERTENSION
     Route: 048
  5. LOSARTAN POTASSIUM [Concomitant]
     Indication: HYPERTENSION
     Route: 048
  6. ALLOPURINOL [Concomitant]
     Indication: GOUT
     Route: 048

REACTIONS (5)
  - BACK PAIN [None]
  - DYSURIA [None]
  - GROIN PAIN [None]
  - KIDNEY INFECTION [None]
  - HAEMATURIA [None]
